FAERS Safety Report 5451359-8 (Version None)
Quarter: 2007Q3

REPORT INFORMATION
  Report Type: 
  Country: None (occurrence: None)
  Receive Date: 20070911
  Receipt Date: 20070911
  Transmission Date: 20080115
  Serious: Yes (Hospitalization)
  Sender: FDA-Public Use
  Company Number: None

PATIENT
  Sex: Female
  Weight: 95.4 kg

DRUGS (2)
  1. FLUOROURACIL [Suspect]
     Dosage: 7800 MG
  2. CISPLATIN [Suspect]
     Dosage: 146 MG

REACTIONS (10)
  - BLOOD PHOSPHORUS ABNORMAL [None]
  - DERMATITIS EXFOLIATIVE [None]
  - DIARRHOEA [None]
  - FATIGUE [None]
  - HAEMOGLOBIN ABNORMAL [None]
  - PAINFUL DEFAECATION [None]
  - PLATELET COUNT ABNORMAL [None]
  - PLATELET DISORDER [None]
  - RADIATION SKIN INJURY [None]
  - WHITE BLOOD CELL COUNT ABNORMAL [None]
